FAERS Safety Report 10530656 (Version 2)
Quarter: 2014Q4

REPORT INFORMATION
  Report Type: Spontaneous
  Country: ES (occurrence: ES)
  Receive Date: 20141021
  Receipt Date: 20141021
  Transmission Date: 20150528
  Serious: Yes (Other)
  Sender: FDA-Public Use
  Company Number: ES-AMGEN-ESPSP2014046749

PATIENT
  Age: 60 Year
  Sex: Male

DRUGS (12)
  1. PREDNISONE. [Concomitant]
     Active Substance: PREDNISONE
     Indication: POLYARTHRITIS
     Dosage: 10 MG, ONCE A DAY
  2. DAFIRO HCT [Concomitant]
     Active Substance: AMLODIPINE\HYDROCHLOROTHIAZIDE\VALSARTAN
     Indication: CORONARY ARTERY BYPASS
     Dosage: ONE DOSAGE FORM (5MG/160MG/12.5MG), ONCE A DAY
  3. EZETROL [Concomitant]
     Active Substance: EZETIMIBE
     Indication: CORONARY ARTERY BYPASS
     Dosage: 10 MG, ONCE A DAY
  4. ADIRO [Concomitant]
     Active Substance: ASPIRIN
     Indication: CORONARY ARTERY BYPASS
     Dosage: 100 MG, ONCE A DAY
  5. ENBREL [Suspect]
     Active Substance: ETANERCEPT
     Indication: PRODUCT USED FOR UNKNOWN INDICATION
     Dosage: 50 MG, WEEKLY
     Route: 058
     Dates: start: 20140401
  6. ENBREL [Suspect]
     Active Substance: ETANERCEPT
     Dosage: 50 MG, WEEKLY
     Route: 058
  7. LANSOPRAZOL [Concomitant]
     Active Substance: LANSOPRAZOLE
     Indication: CORONARY ARTERY BYPASS
     Dosage: 30 MG, ONCE A DAY
  8. CRESTOR [Concomitant]
     Active Substance: ROSUVASTATIN CALCIUM
     Indication: CORONARY ARTERY BYPASS
     Dosage: 20 MG, ONCE A DAY
  9. ENANTYUM [Concomitant]
     Active Substance: DEXKETOPROFEN TROMETAMOL
     Indication: PAIN
     Dosage: ONE DOSAGE FORM, THRICE A DAY
  10. ZALDIAR [Concomitant]
     Active Substance: ACETAMINOPHEN\TRAMADOL HYDROCHLORIDE
     Indication: PAIN
     Dosage: ONE DOSAGE FORM (325MG/37.5MG), THRICE A DAY
  11. EMCONCOR [Concomitant]
     Active Substance: BISOPROLOL FUMARATE
     Indication: CORONARY ARTERY BYPASS
     Dosage: 2.5 MG, ONCE A DAY
  12. ACETAMINOPHEN. [Concomitant]
     Active Substance: ACETAMINOPHEN
     Indication: PAIN
     Dosage: 1G, THRICE A DAY

REACTIONS (9)
  - Injection site reaction [Unknown]
  - Injection site erythema [Recovered/Resolved]
  - Injection site pruritus [Unknown]
  - Condition aggravated [Recovered/Resolved]
  - Mobility decreased [Unknown]
  - Injection site swelling [Unknown]
  - Salmonellosis [Unknown]
  - Arthralgia [Recovered/Resolved]
  - Injection site mass [Unknown]

NARRATIVE: CASE EVENT DATE: 2014
